FAERS Safety Report 10901776 (Version 1)
Quarter: 2015Q1

REPORT INFORMATION
  Report Type: Spontaneous
  Country: AU (occurrence: AU)
  Receive Date: 20150310
  Receipt Date: 20150310
  Transmission Date: 20150721
  Serious: Yes (Hospitalization)
  Sender: FDA-Public Use
  Company Number: AU-SA-2014SA169099

PATIENT
  Age: 84 Year
  Sex: Male
  Weight: 97.3 kg

DRUGS (16)
  1. ZOLADEX [Concomitant]
     Active Substance: GOSERELIN ACETATE
     Dates: start: 201308
  2. LYRICA [Concomitant]
     Active Substance: PREGABALIN
     Dates: start: 201407
  3. GLIPIZIDE. [Concomitant]
     Active Substance: GLIPIZIDE
     Dates: start: 2010
  4. SOMAC [Concomitant]
     Active Substance: PANTOPRAZOLE SODIUM
     Dates: start: 20140910
  5. PROGOUT [Concomitant]
     Active Substance: ALLOPURINOL
     Dates: start: 1994
  6. PANADOL [Concomitant]
     Active Substance: ACETAMINOPHEN
     Dates: start: 20140910
  7. OLMETEC PLUS [Concomitant]
     Active Substance: HYDROCHLOROTHIAZIDE\OLMESARTAN MEDOXOMIL
     Dates: start: 1999
  8. ENZALUTAMIDE [Suspect]
     Active Substance: ENZALUTAMIDE
     Indication: PROSTATE CANCER
     Route: 048
     Dates: start: 20140917
  9. SIMVASTATIN. [Concomitant]
     Active Substance: SIMVASTATIN
     Dates: start: 2004
  10. FENAC [Concomitant]
     Dates: start: 20140910
  11. OSTELIN VITAMIN D [Concomitant]
     Dates: start: 2010
  12. ASPIRIN. [Concomitant]
     Active Substance: ASPIRIN
     Dates: start: 1999, end: 20140922
  13. ACIMAX [Concomitant]
     Active Substance: OMEPRAZOLE
     Dates: start: 201407, end: 20141015
  14. CLEXANE [Suspect]
     Active Substance: ENOXAPARIN SODIUM
     Indication: DEEP VEIN THROMBOSIS
     Route: 058
     Dates: start: 20140929
  15. DENOSUMAB [Concomitant]
     Active Substance: DENOSUMAB
     Dates: start: 20140616
  16. ELOCON [Concomitant]
     Active Substance: MOMETASONE FUROATE
     Indication: RASH
     Dates: start: 20141002

REACTIONS (4)
  - Haematuria [Recovered/Resolved]
  - Deep vein thrombosis [Recovered/Resolved]
  - Urinary tract obstruction [Recovered/Resolved]
  - Ureteric obstruction [Recovered/Resolved]

NARRATIVE: CASE EVENT DATE: 20140921
